FAERS Safety Report 4703727-7 (Version None)
Quarter: 2005Q2

REPORT INFORMATION
  Report Type: 
  Country: None (occurrence: None)
  Receive Date: 20050208
  Receipt Date: 20050208
  Transmission Date: 20051028
  Serious: Yes (Other)
  Sender: FDA-Public Use
  Company Number: None

PATIENT
  Sex: Female

DRUGS (1)
  1. CARBAMAZEPINE [Suspect]
     Dosage: 200MG/200MG/300MG PO  (TRIED X 1 WEEK)
     Route: 048
     Dates: start: 19900101

REACTIONS (4)
  - CONVULSION [None]
  - FALL [None]
  - HYPOTONIA [None]
  - THERAPEUTIC RESPONSE UNEXPECTED WITH DRUG SUBSTITUTION [None]
